FAERS Safety Report 26011655 (Version 1)
Quarter: 2025Q4

REPORT INFORMATION
  Report Type: Spontaneous
  Country: US (occurrence: US)
  Receive Date: 20251107
  Receipt Date: 20251107
  Transmission Date: 20260117
  Serious: Yes (Hospitalization, Other)
  Sender: Haleon PLC
  Company Number: US-HALEON-2272451

PATIENT
  Age: 17 Year
  Sex: Male

DRUGS (1)
  1. IBUPROFEN [Suspect]
     Active Substance: IBUPROFEN
     Indication: Product used for unknown indication
     Dosage: 500 TABLETS OF 200 MG
     Route: 048

REACTIONS (6)
  - Acute kidney injury [Recovering/Resolving]
  - Intentional overdose [Unknown]
  - Metabolic acidosis [Recovering/Resolving]
  - Hypotension [Recovering/Resolving]
  - Mental status changes [Recovering/Resolving]
  - Gastrointestinal haemorrhage [Recovering/Resolving]
